FAERS Safety Report 15934135 (Version 2)
Quarter: 2019Q3

REPORT INFORMATION
  Report Type: Spontaneous
  Country: US (occurrence: US)
  Receive Date: 20190207
  Receipt Date: 20190819
  Transmission Date: 20191004
  Serious: Yes (Other)
  Sender: FDA-Public Use
  Company Number: US-MYLANLABS-2019M1007026

PATIENT
  Age: 82 Year
  Sex: Male
  Weight: 92.52 kg

DRUGS (1)
  1. MUSE [Suspect]
     Active Substance: ALPROSTADIL
     Indication: ERECTILE DYSFUNCTION
     Dosage: 1000 UNK, PRN
     Route: 066
     Dates: start: 20190121

REACTIONS (1)
  - Penile haemorrhage [Not Recovered/Not Resolved]

NARRATIVE: CASE EVENT DATE: 20190121
